FAERS Safety Report 13993296 (Version 2)
Quarter: 2017Q4

REPORT INFORMATION
  Report Type: Spontaneous
  Country: GB (occurrence: GB)
  Receive Date: 20170920
  Receipt Date: 20171023
  Transmission Date: 20180321
  Serious: Yes (Death, Other)
  Sender: FDA-Public Use
  Company Number: GB-TEVA-806504ACC

PATIENT
  Age: 35 Year
  Sex: Male

DRUGS (5)
  1. CANNABIS [Suspect]
     Active Substance: CANNABIS SATIVA SUBSP. INDICA TOP
  2. PREGABALIN. [Suspect]
     Active Substance: PREGABALIN
  3. METHADONE [Suspect]
     Active Substance: METHADONE HYDROCHLORIDE
  4. DIAZEPAM. [Suspect]
     Active Substance: DIAZEPAM
  5. OLANZAPINE. [Suspect]
     Active Substance: OLANZAPINE

REACTIONS (5)
  - Accidental overdose [Fatal]
  - Toxicity to various agents [Fatal]
  - Drug dependence [Fatal]
  - Prescription drug used without a prescription [Unknown]
  - Unresponsive to stimuli [Unknown]

NARRATIVE: CASE EVENT DATE: 20161123
